FAERS Safety Report 20653793 (Version 1)
Quarter: 2022Q1

REPORT INFORMATION
  Report Type: Spontaneous
  Country: US (occurrence: None)
  Receive Date: 20220329
  Receipt Date: 20220329
  Transmission Date: 20220423
  Serious: No
  Sender: FDA-Public Use
  Company Number: None

PATIENT
  Age: 51 Year
  Sex: Male
  Weight: 74.25 kg

DRUGS (7)
  1. KENALOG [Suspect]
     Active Substance: TRIAMCINOLONE ACETONIDE
     Indication: Swelling
  2. KENALOG [Suspect]
     Active Substance: TRIAMCINOLONE ACETONIDE
     Indication: Inflammation
  3. HYDROCODONE [Concomitant]
     Active Substance: HYDROCODONE
  4. ALBUTEROL [Concomitant]
     Active Substance: ALBUTEROL
  5. VITAMIN D [Concomitant]
     Active Substance: VITAMIN D NOS
  6. VITAMIN B [Concomitant]
     Active Substance: VITAMIN B
  7. VITAMINS [Concomitant]
     Active Substance: VITAMINS

REACTIONS (6)
  - Dizziness [None]
  - Feeling hot [None]
  - Blood pressure increased [None]
  - Feeling abnormal [None]
  - Ear infection [None]
  - Weight increased [None]

NARRATIVE: CASE EVENT DATE: 20210503
